FAERS Safety Report 4289348-1 (Version None)
Quarter: 2004Q1

REPORT INFORMATION
  Report Type: 
  Country: None (occurrence: None)
  Receive Date: 20040206
  Receipt Date: 20040202
  Transmission Date: 20041129
  Serious: No
  Sender: FDA-Public Use
  Company Number: 2003UW12714

PATIENT
  Age: 23 Month
  Sex: Male
  Weight: 14.5151 kg

DRUGS (2)
  1. PULMICORT RESPULES [Suspect]
     Indication: NASOPHARYNGITIS
     Dosage: 0.5 MG DAILY IH
     Route: 055
     Dates: start: 20030401, end: 20030601
  2. PULMICORT RESPULES [Suspect]
     Indication: NASOPHARYNGITIS
     Dosage: 0.5 BID IH
     Route: 055
     Dates: start: 20030910, end: 20030101

REACTIONS (2)
  - ANAPHYLACTIC REACTION [None]
  - BRONCHOSPASM [None]
